FAERS Safety Report 8590097 (Version 2)
Quarter: 2012Q4

REPORT INFORMATION
  Report Type: 
  Country: US (occurrence: US)
  Receive Date: 20120601
  Receipt Date: 20120831
  Transmission Date: 20130627
  Serious: Yes (Hospitalization)
  Sender: FDA-Public Use
  Company Number: US-JNJFOC-20120518319

PATIENT
  Age: 50 None
  Sex: Female
  Weight: 109.77 kg

DRUGS (4)
  1. DURAGESIC [Suspect]
     Indication: MULTIPLE SCLEROSIS
     Route: 062
     Dates: start: 2009
  2. DURAGESIC [Suspect]
     Indication: MULTIPLE SCLEROSIS
     Route: 062
     Dates: start: 2008, end: 2009
  3. DURAGESIC [Suspect]
     Indication: MULTIPLE SCLEROSIS
     Route: 062
     Dates: start: 2004, end: 2008
  4. MORPHINE SULFATE [Concomitant]
     Indication: PAIN
     Dosage: 3-4 daily as needed
     Route: 048
     Dates: start: 2004

REACTIONS (6)
  - Thyroid cancer [Recovered/Resolved]
  - Central nervous system lesion [Not Recovered/Not Resolved]
  - Memory impairment [Not Recovered/Not Resolved]
  - Drug ineffective [Recovered/Resolved]
  - Wrong technique in drug usage process [Not Recovered/Not Resolved]
  - Product quality issue [Unknown]
